FAERS Safety Report 23746954 (Version 1)
Quarter: 2024Q2

REPORT INFORMATION
  Report Type: Spontaneous
  Country: IN (occurrence: IN)
  Receive Date: 20240416
  Receipt Date: 20240416
  Transmission Date: 20240715
  Serious: Yes (Other)
  Sender: FDA-Public Use
  Company Number: IN-Accord-418951

PATIENT
  Age: 18 Year
  Sex: Female

DRUGS (1)
  1. ITRACONAZOLE [Suspect]
     Active Substance: ITRACONAZOLE
     Indication: Body tinea

REACTIONS (2)
  - Galactorrhoea [Recovered/Resolved]
  - Hyperprolactinaemia [Recovered/Resolved]
